FAERS Safety Report 7097519-4 (Version None)
Quarter: 2010Q4

REPORT INFORMATION
  Report Type: 
  Country: None (occurrence: None)
  Receive Date: 20101111
  Receipt Date: 20101101
  Transmission Date: 20110411
  Serious: Yes (Other)
  Sender: FDA-Public Use
  Company Number: PHHY2009CA50595

PATIENT
  Sex: Female

DRUGS (5)
  1. ACLASTA/ZOLEDRONATE T29581+A+ [Suspect]
     Dosage: 5 MG
     Route: 042
     Dates: start: 20090508, end: 20100506
  2. VITAMIN D [Concomitant]
     Dosage: 800 UNITS
  3. CALCIUM [Concomitant]
     Dosage: 1000 MG DAILY
     Dates: start: 19961001
  4. FOSAMAX [Concomitant]
     Dosage: UNK
     Dates: start: 19961001, end: 20090506
  5. CORTICOSTEROID NOS [Concomitant]
     Dosage: FOR MORE THAN 5 YEARS

REACTIONS (4)
  - FALL [None]
  - FEMUR FRACTURE [None]
  - FRACTURE [None]
  - RIB FRACTURE [None]
